FAERS Safety Report 22033405 (Version 4)
Quarter: 2023Q2

REPORT INFORMATION
  Report Type: Spontaneous
  Country: US (occurrence: US)
  Receive Date: 20230224
  Receipt Date: 20230523
  Transmission Date: 20230721
  Serious: No
  Sender: FDA-Public Use
  Company Number: US-PFIZER INC-PV202200053165

PATIENT
  Age: 68 Year
  Sex: Female

DRUGS (2)
  1. IBRANCE [Suspect]
     Active Substance: PALBOCICLIB
     Indication: Breast cancer female
     Dosage: 125 MG
  2. LETROZOLE [Concomitant]
     Active Substance: LETROZOLE
     Dosage: UNK

REACTIONS (1)
  - COVID-19 [Unknown]
